FAERS Safety Report 8486435-9 (Version None)
Quarter: 2012Q3

REPORT INFORMATION
  Report Type: 
  Country: None (occurrence: None)
  Receive Date: 20120703
  Receipt Date: 20120619
  Transmission Date: 20120928
  Serious: Yes (Hospitalization)
  Sender: FDA-Public Use
  Company Number: US-FRI-1000036747

PATIENT
  Sex: Female

DRUGS (5)
  1. LUAF41156 [Suspect]
     Indication: MAJOR DEPRESSION
     Dosage: 3 MG
     Route: 048
     Dates: start: 20110816
  2. BIOTENE [Concomitant]
     Dates: start: 20100101
  3. YASMIN [Concomitant]
     Dates: start: 20090101
  4. ZYRTEC [Concomitant]
     Dates: start: 20050101
  5. ESCITALOPRAM [Suspect]
     Indication: MAJOR DEPRESSION
     Dosage: 20 MG
     Route: 048
     Dates: start: 20110707

REACTIONS (1)
  - CHOLECYSTITIS [None]
